FAERS Safety Report 23256298 (Version 6)
Quarter: 2025Q3

REPORT INFORMATION
  Report Type: Report from Study
  Country: US (occurrence: US)
  Receive Date: 20231204
  Receipt Date: 20250928
  Transmission Date: 20251021
  Serious: No
  Sender: JOHNSON AND JOHNSON
  Company Number: US-JNJFOC-20231116199

PATIENT
  Age: 54 Year
  Sex: Female

DRUGS (8)
  1. STELARA [Suspect]
     Active Substance: USTEKINUMAB
     Indication: Crohn^s disease
     Route: 058
  2. STELARA [Suspect]
     Active Substance: USTEKINUMAB
  3. STELARA [Suspect]
     Active Substance: USTEKINUMAB
     Indication: Crohn^s disease
     Route: 058
  4. STELARA [Suspect]
     Active Substance: USTEKINUMAB
  5. STELARA [Suspect]
     Active Substance: USTEKINUMAB
     Indication: Crohn^s disease
     Route: 058
  6. STELARA [Suspect]
     Active Substance: USTEKINUMAB
  7. STELARA [Suspect]
     Active Substance: USTEKINUMAB
     Indication: Crohn^s disease
     Route: 058
  8. STELARA [Suspect]
     Active Substance: USTEKINUMAB

REACTIONS (9)
  - Device malfunction [Unknown]
  - Product packaging issue [Unknown]
  - Malaise [Unknown]
  - Product dose omission issue [Unknown]
  - Needle issue [Unknown]
  - Device defective [Unknown]
  - Off label use [Unknown]
  - Skin laceration [Unknown]
  - Surgery [Unknown]

NARRATIVE: CASE EVENT DATE: 20231027
